FAERS Safety Report 8261171-2 (Version None)
Quarter: 2012Q2

REPORT INFORMATION
  Report Type: 
  Country: None (occurrence: None)
  Receive Date: 20120405
  Receipt Date: 20120328
  Transmission Date: 20120825
  Serious: Yes (Other)
  Sender: FDA-Public Use
  Company Number: US-US-EMD SERONO, INC.-7122796

PATIENT
  Sex: Female
  Weight: 90 kg

DRUGS (1)
  1. REBIF [Suspect]
     Indication: MULTIPLE SCLEROSIS
     Route: 058
     Dates: start: 20101220

REACTIONS (10)
  - PAIN [None]
  - NECK PAIN [None]
  - BONE PAIN [None]
  - SALMONELLOSIS [None]
  - BLADDER DISORDER [None]
  - INJECTION SITE PAIN [None]
  - URINARY TRACT INFECTION [None]
  - DIZZINESS [None]
  - INFLUENZA LIKE ILLNESS [None]
  - HEADACHE [None]
